FAERS Safety Report 8645282 (Version 5)
Quarter: 2014Q1

REPORT INFORMATION
  Report Type: Spontaneous
  Country: JP (occurrence: JP)
  Receive Date: 20120702
  Receipt Date: 20140225
  Transmission Date: 20141002
  Serious: Yes (Death, Life-Threatening, Hospitalization, Other)
  Sender: FDA-Public Use
  Company Number: JP-TEVA-2011006105

PATIENT
  Age: 89 Year
  Sex: Female
  Weight: 37.5 kg

DRUGS (12)
  1. BENDAMUSTINE HCL [Suspect]
     Indication: DIFFUSE LARGE B-CELL LYMPHOMA
     Dosage: 120 MG/M2 DAILY;
     Route: 042
     Dates: start: 20110824, end: 20110825
  2. BENDAMUSTINE HCL [Suspect]
     Dosage: 120 MG/M2 DAILY;
     Route: 042
     Dates: start: 20110913
  3. RITUXIMAB [Suspect]
     Indication: DIFFUSE LARGE B-CELL LYMPHOMA
     Dosage: 490 MILLIGRAM DAILY;
     Route: 042
     Dates: start: 20110726
  4. VINCRISTINE SULFATE [Suspect]
     Indication: DIFFUSE LARGE B-CELL LYMPHOMA
     Dosage: .9 MILLIGRAM DAILY;
     Route: 042
     Dates: start: 20110726
  5. CYCLOPHOSPHAMIDE [Suspect]
     Indication: DIFFUSE LARGE B-CELL LYMPHOMA
     Dosage: 490 MILLIGRAM DAILY;
     Route: 042
     Dates: start: 20110726
  6. PREDNISOLON /00016201/ [Suspect]
     Indication: DIFFUSE LARGE B-CELL LYMPHOMA
     Dosage: 80 MILLIGRAM DAILY;
     Route: 048
     Dates: start: 20110726
  7. GRANISETRON HYDROCHLORIDE [Concomitant]
     Indication: VOMITING
     Dosage: 3 MILLIGRAM DAILY;
     Dates: start: 20110824, end: 20110825
  8. GRANISETRON HYDROCHLORIDE [Concomitant]
     Dosage: 3 MILLIGRAM DAILY;
     Dates: start: 20110914
  9. PALONOSETRON HYDROCHLORIDE [Concomitant]
     Dosage: .75 MILLIGRAM DAILY;
     Dates: start: 20110913, end: 20110913
  10. CEFMETAZOLE SODIUM [Concomitant]
     Indication: INFECTION
     Dosage: 3 GRAM DAILY;
     Dates: start: 20111008, end: 20111014
  11. TAZOBACTAM SODIUM [Concomitant]
     Indication: PNEUMONIA ASPIRATION
     Dosage: 13.5 GRAM DAILY;
     Dates: start: 20111018, end: 20111028
  12. PLATELETS, HUMAN BLOOD [Concomitant]
     Dates: start: 20111018, end: 20111028

REACTIONS (8)
  - Pneumocystis jirovecii pneumonia [Fatal]
  - Respiratory failure [Fatal]
  - Cytomegalovirus gastroenteritis [Recovering/Resolving]
  - Ileus paralytic [Recovering/Resolving]
  - Immunosuppression [Recovered/Resolved]
  - CD4/CD8 ratio decreased [Unknown]
  - Nausea [Recovered/Resolved]
  - Decreased appetite [Recovered/Resolved]
